FAERS Safety Report 10683946 (Version 1)
Quarter: 2014Q4

REPORT INFORMATION
  Report Type: Report from Study
  Country: US (occurrence: US)
  Receive Date: 20141230
  Receipt Date: 20141230
  Transmission Date: 20150529
  Serious: Yes (Other)
  Sender: FDA-Public Use
  Company Number: US-ACTELION-A-US2014-110158

PATIENT
  Age: 10 Year
  Sex: Male

DRUGS (4)
  1. ZAVESCA [Suspect]
     Active Substance: MIGLUSTAT
     Indication: LIPIDOSIS
     Dosage: 100 MG, TID
     Route: 048
     Dates: start: 20130117
  2. DEXTRIN [Concomitant]
     Active Substance: ICODEXTRIN
     Dosage: UNK
  3. PROVIGIL [Concomitant]
     Active Substance: MODAFINIL
     Dosage: UNK
  4. TYLENOL [Concomitant]
     Active Substance: ACETAMINOPHEN
     Dosage: UNK

REACTIONS (1)
  - Lumbar puncture [Unknown]
